FAERS Safety Report 14046303 (Version 8)
Quarter: 2018Q2

REPORT INFORMATION
  Report Type: Report from Study
  Country: US (occurrence: US)
  Receive Date: 20171005
  Receipt Date: 20180427
  Transmission Date: 20180711
  Serious: Yes (Other)
  Sender: FDA-Public Use
  Company Number: US-TESARO, INC-US-2017TSO02047

PATIENT

DRUGS (9)
  1. ZEJULA [Suspect]
     Active Substance: NIRAPARIB
     Dosage: 300 MG, QD
     Route: 048
  2. ZEJULA [Suspect]
     Active Substance: NIRAPARIB
     Indication: OVARIAN CANCER
     Dosage: 300 MG, QD
     Route: 048
     Dates: start: 20170703
  3. ZEJULA [Suspect]
     Active Substance: NIRAPARIB
     Dosage: 100 MG, QD
     Route: 048
  4. ZOFRAN [Concomitant]
     Active Substance: ONDANSETRON HYDROCHLORIDE
     Indication: NAUSEA
     Dosage: UNK
  5. TYLENOL [Concomitant]
     Active Substance: ACETAMINOPHEN
     Indication: HEADACHE
     Dosage: UNK
  6. ZEJULA [Suspect]
     Active Substance: NIRAPARIB
     Dosage: 200 MG, QD
     Route: 048
     Dates: end: 20170925
  7. ZEJULA [Suspect]
     Active Substance: NIRAPARIB
     Dosage: 100 MG, QAM
     Route: 048
  8. LORAZEPAM. [Concomitant]
     Active Substance: LORAZEPAM
     Indication: SLEEP DISORDER
     Dosage: UNK
  9. ZEJULA [Suspect]
     Active Substance: NIRAPARIB
     Dosage: UNK
     Route: 048
     Dates: start: 20180115

REACTIONS (44)
  - Oropharyngeal discomfort [Unknown]
  - Tooth disorder [Not Recovered/Not Resolved]
  - Malaise [Not Recovered/Not Resolved]
  - Pain [Not Recovered/Not Resolved]
  - Fatigue [Not Recovered/Not Resolved]
  - Abdominal rigidity [Not Recovered/Not Resolved]
  - Abdominal discomfort [Unknown]
  - Gastric disorder [Not Recovered/Not Resolved]
  - Decreased appetite [Not Recovered/Not Resolved]
  - Depressed mood [Not Recovered/Not Resolved]
  - Diarrhoea [Recovered/Resolved]
  - Cardiomegaly [Not Recovered/Not Resolved]
  - Blood glucose increased [Unknown]
  - Gastrooesophageal reflux disease [Not Recovered/Not Resolved]
  - Sinusitis [Not Recovered/Not Resolved]
  - Influenza [Recovering/Resolving]
  - Abdominal pain [Not Recovered/Not Resolved]
  - Nasal congestion [Recovering/Resolving]
  - Hypoaesthesia [Unknown]
  - Contusion [Unknown]
  - Dyspnoea [Not Recovered/Not Resolved]
  - Ascites [Not Recovered/Not Resolved]
  - Compression fracture [Recovering/Resolving]
  - Hernia [Recovered/Resolved]
  - Abdominal adhesions [Unknown]
  - Chills [Recovering/Resolving]
  - Drug dose omission [Not Recovered/Not Resolved]
  - Osteopenia [Not Recovered/Not Resolved]
  - Constipation [Not Recovered/Not Resolved]
  - Sluggishness [Not Recovered/Not Resolved]
  - Pyrexia [Recovering/Resolving]
  - Feeling abnormal [Not Recovered/Not Resolved]
  - Abdominal pain upper [Not Recovered/Not Resolved]
  - Blood pressure increased [Unknown]
  - Hyperhidrosis [Not Recovered/Not Resolved]
  - Fall [Recovered/Resolved]
  - Bone density decreased [Unknown]
  - Asthenia [Not Recovered/Not Resolved]
  - Loss of consciousness [Recovered/Resolved]
  - Dysphagia [Unknown]
  - Contrast media reaction [Unknown]
  - Emotional poverty [Not Recovered/Not Resolved]
  - Amnesia [Not Recovered/Not Resolved]
  - Platelet count decreased [Not Recovered/Not Resolved]

NARRATIVE: CASE EVENT DATE: 20171225
